FAERS Safety Report 22633726 (Version 2)
Quarter: 2023Q2

REPORT INFORMATION
  Report Type: Spontaneous
  Country: HK (occurrence: HK)
  Receive Date: 20230623
  Receipt Date: 20230628
  Transmission Date: 20230722
  Serious: Yes (Death, Hospitalization, Other)
  Sender: FDA-Public Use
  Company Number: HK-PFIZER INC-PV202300108425

PATIENT
  Age: 91 Year
  Sex: Female

DRUGS (2)
  1. GENTAMICIN SULFATE [Suspect]
     Active Substance: GENTAMICIN SULFATE
     Indication: Pyrexia
     Dosage: UNK
  2. CLAVULANIC ACID\TICARCILLIN [Suspect]
     Active Substance: CLAVULANIC ACID\TICARCILLIN
     Indication: Pyrexia
     Dosage: UNK

REACTIONS (1)
  - Pneumonia [Fatal]
